FAERS Safety Report 16482509 (Version 1)
Quarter: 2019Q2

REPORT INFORMATION
  Report Type: Report from Study
  Country: None (occurrence: US)
  Receive Date: 20190627
  Receipt Date: 20190627
  Transmission Date: 20190711
  Serious: Yes (Other)
  Sender: FDA-Public Use
  Company Number: US-ABBVIE-19K-163-2820972-00

PATIENT
  Age: 63 Year
  Sex: Female

DRUGS (1)
  1. HUMIRA [Suspect]
     Active Substance: ADALIMUMAB
     Indication: RHEUMATOID ARTHRITIS
     Route: 058

REACTIONS (7)
  - Rhinorrhoea [Recovering/Resolving]
  - Nasal valve collapse [Recovering/Resolving]
  - Nasal oedema [Not Recovered/Not Resolved]
  - Musculoskeletal stiffness [Unknown]
  - Finger deformity [Recovering/Resolving]
  - Injection site pain [Not Recovered/Not Resolved]
  - X-ray limb abnormal [Recovering/Resolving]

NARRATIVE: CASE EVENT DATE: 2017
